FAERS Safety Report 10141634 (Version 1)
Quarter: 2014Q2

REPORT INFORMATION
  Report Type: Spontaneous
  Country: US (occurrence: US)
  Receive Date: 20140429
  Receipt Date: 20140429
  Transmission Date: 20141212
  Serious: No
  Sender: FDA-Public Use
  Company Number: US-PFIZER INC-2014115828

PATIENT
  Age: 40 Year
  Sex: Female
  Weight: 80.27 kg

DRUGS (3)
  1. PRISTIQ [Suspect]
     Indication: INSOMNIA
     Dosage: 50 MG, ONCE A DAY
     Route: 048
     Dates: start: 20140411
  2. VITAMIN D3 [Concomitant]
     Dosage: UNK,ONCE A DAY (AT NIGHT)
  3. BABY ASPIRIN [Concomitant]
     Dosage: UNK, ONCE A DAY (AT NIGHT)

REACTIONS (3)
  - Hyperhidrosis [Not Recovered/Not Resolved]
  - Feeling hot [Not Recovered/Not Resolved]
  - Off label use [Not Recovered/Not Resolved]
